FAERS Safety Report 15906900 (Version 5)
Quarter: 2020Q3

REPORT INFORMATION
  Report Type: Spontaneous
  Country: US (occurrence: US)
  Receive Date: 20190204
  Receipt Date: 20200707
  Transmission Date: 20201102
  Serious: Yes (Death)
  Sender: FDA-Public Use
  Company Number: US-PFIZER INC-2019051418

PATIENT
  Age: 61 Year
  Sex: Male

DRUGS (2)
  1. SUTENT [Suspect]
     Active Substance: SUNITINIB MALATE
     Indication: RENAL CANCER
     Dosage: 50 MG, CYCLIC [DAILY FOR 14 DAYS ON, 7 DAYS OFF THEN REPEAT]
     Route: 048
     Dates: start: 201901
  2. SUTENT [Suspect]
     Active Substance: SUNITINIB MALATE
     Dosage: 37.5 MG, CYCLIC [DAILY FOR 2 WEEKS ON AND ONE WEEK OFF, REPEAT EVERY 21 DAYS]
     Route: 048
     Dates: start: 201901

REACTIONS (11)
  - Increased appetite [Unknown]
  - Death [Fatal]
  - Feeling hot [Unknown]
  - Pyrexia [Recovering/Resolving]
  - Hyperchlorhydria [Recovered/Resolved]
  - Gastrointestinal disorder [Unknown]
  - Pain [Unknown]
  - Paraesthesia [Recovered/Resolved]
  - Nasopharyngitis [Unknown]
  - Tonsillar hypertrophy [Unknown]
  - Somnolence [Unknown]

NARRATIVE: CASE EVENT DATE: 2019
